FAERS Safety Report 10565395 (Version 1)
Quarter: 2014Q4

REPORT INFORMATION
  Report Type: Spontaneous
  Country: US (occurrence: None)
  Receive Date: 20141103
  Receipt Date: 20141103
  Transmission Date: 20150529
  Serious: Yes (Hospitalization)
  Sender: FDA-Public Use
  Company Number: FK201404649

PATIENT
  Age: 55 Year
  Sex: Male

DRUGS (5)
  1. DAUNORUBICIN [Suspect]
     Active Substance: DAUNORUBICIN
     Indication: ACUTE MYELOID LEUKAEMIA
  2. TRANS-RETINOIC ACID (TRETINOIN) [Concomitant]
  3. CYTARABINE. [Suspect]
     Active Substance: CYTARABINE
     Indication: ACUTE MYELOID LEUKAEMIA
  4. VALACYCLOVIR (VALACICLOVIR HYDROCHLORIDE) [Concomitant]
  5. OMEPRAZOLE. [Concomitant]
     Active Substance: OMEPRAZOLE

REACTIONS (5)
  - Cardiomyopathy [None]
  - Palpitations [None]
  - Acute myocardial infarction [None]
  - Stress cardiomyopathy [None]
  - Chest pain [None]
